FAERS Safety Report 7538399-X (Version None)
Quarter: 2011Q2

REPORT INFORMATION
  Report Type: 
  Country: None (occurrence: None)
  Receive Date: 20110609
  Receipt Date: 20110525
  Transmission Date: 20111010
  Serious: Yes (Life-Threatening, Other)
  Sender: FDA-Public Use
  Company Number: JP-WATSON-2011-06650

PATIENT
  Age: 84 Year
  Sex: Male

DRUGS (8)
  1. RAPAFLO [Suspect]
     Indication: DYSURIA
     Dosage: 8 MG DAILY
     Route: 048
     Dates: start: 20081216, end: 20110419
  2. CHLORMADINONE ACETATE TAB [Concomitant]
     Indication: BENIGN PROSTATIC HYPERPLASIA
     Dosage: 50 MG DAILY
     Route: 048
     Dates: start: 20091027, end: 20110419
  3. BLADDERON [Concomitant]
     Indication: BENIGN PROSTATIC HYPERPLASIA
     Dosage: 400 MG DAILY
     Route: 048
     Dates: start: 20100223, end: 20110419
  4. CARNACULIN                         /00088101/ [Concomitant]
     Indication: PRODUCT USED FOR UNKNOWN INDICATION
     Dosage: 3 DOSAGE FORMS
     Route: 048
     Dates: end: 20110419
  5. PANTOSIN [Concomitant]
     Indication: CONSTIPATION
     Dosage: 1.2 GRAM DAILY
     Route: 048
  6. EURODIN                            /00425901/ [Concomitant]
     Indication: INSOMNIA
     Dosage: PRN
     Route: 048
     Dates: start: 20110125
  7. MAGNESIUM OXIDE [Concomitant]
     Indication: CONSTIPATION
     Dosage: 1.2 GRAM DAILY
     Route: 048
  8. METHYCOBAL [Concomitant]
     Indication: PRODUCT USED FOR UNKNOWN INDICATION
     Dosage: 1500 MCG DAILY
     Route: 048
     Dates: end: 20110419

REACTIONS (1)
  - INTERSTITIAL LUNG DISEASE [None]
